FAERS Safety Report 12429476 (Version 2)
Quarter: 2016Q2

REPORT INFORMATION
  Report Type: Spontaneous
  Country: DE (occurrence: DE)
  Receive Date: 20160602
  Receipt Date: 20160629
  Transmission Date: 20160815
  Serious: Yes (Hospitalization, Other)
  Sender: FDA-Public Use
  Company Number: DE-VALIDUS PHARMACEUTICALS LLC-DE-2016VAL001610

PATIENT
  Age: 46 Year
  Sex: Male

DRUGS (1)
  1. CARBAMAZEPINE. [Suspect]
     Active Substance: CARBAMAZEPINE
     Indication: PRODUCT USED FOR UNKNOWN INDICATION
     Dosage: 10 DF, IN 2 DAYS
     Route: 048

REACTIONS (12)
  - Overdose [Recovered/Resolved]
  - Ataxia [Unknown]
  - Facial bones fracture [Unknown]
  - Nystagmus [Unknown]
  - Dysarthria [Unknown]
  - Hyperreflexia [Unknown]
  - Epilepsy [Unknown]
  - Extensor plantar response [Unknown]
  - Dysmetria [Unknown]
  - Cerebellar syndrome [Unknown]
  - Hyperchromic anaemia [Unknown]
  - Rhabdomyolysis [Unknown]
